FAERS Safety Report 8947496 (Version 2)
Quarter: 2013Q2

REPORT INFORMATION
  Report Type: Spontaneous
  Country: JP (occurrence: JP)
  Receive Date: 20121204
  Receipt Date: 20130402
  Transmission Date: 20140414
  Serious: Yes (Life-Threatening, Hospitalization, Disabling)
  Sender: FDA-Public Use
  Company Number: JP-009507513-1106USA02228

PATIENT
  Age: 70 Year
  Sex: Male

DRUGS (5)
  1. JANUVIA TABLETS 50MG [Suspect]
     Indication: TYPE 2 DIABETES MELLITUS
     Dosage: 50 MG, QD
     Route: 048
     Dates: start: 201012, end: 20110201
  2. PRAVATIN [Suspect]
     Indication: DYSLIPIDAEMIA
     Dosage: 5 MG, QD
     Route: 048
     Dates: end: 20110201
  3. VOGLIBOSE [Suspect]
     Indication: DIABETES MELLITUS
     Dosage: 0.2 MG, TID
     Route: 048
     Dates: end: 20110201
  4. FAMOTIDINE [Suspect]
     Indication: GASTRITIS
     Dosage: 10 MG, BID
     Route: 048
     Dates: end: 20110202
  5. NELBIS [Suspect]
     Indication: DIABETES MELLITUS
     Dosage: 250 MG, TID
     Route: 048
     Dates: end: 20110201

REACTIONS (2)
  - Interstitial lung disease [Recovering/Resolving]
  - Respiratory disorder [Unknown]
